FAERS Safety Report 8902507 (Version 1)
Quarter: 2012Q4

REPORT INFORMATION
  Report Type: 
  Country: DE (occurrence: DE)
  Receive Date: 20121112
  Receipt Date: 20121112
  Transmission Date: 20130627
  Serious: Yes (Other)
  Sender: FDA-Public Use
  Company Number: DE-CELGENEUS-062-50794-12101538

PATIENT
  Age: 70 Year
  Sex: Female

DRUGS (6)
  1. VIDAZA [Suspect]
     Indication: ACUTE MYELOID LEUKEMIA
     Route: 041
  2. VIDAZA [Suspect]
     Route: 058
  3. VIDAZA [Suspect]
     Route: 065
  4. DAUNORUBICINE [Concomitant]
     Indication: ACUTE MYELOID LEUKEMIA
     Route: 041
  5. CYTARABINE [Concomitant]
     Indication: ACUTE MYELOID LEUKEMIA
     Route: 041
  6. CYTARABINE [Concomitant]
     Dosage: 2 milligram/sq. meter
     Route: 041

REACTIONS (31)
  - Neutropenic sepsis [Recovered/Resolved]
  - Thrombophlebitis [Unknown]
  - Arrhythmia [Unknown]
  - Angioedema [Unknown]
  - Chills [Unknown]
  - Folliculitis [Unknown]
  - Eye pain [Unknown]
  - Rash [Unknown]
  - Oedema peripheral [Unknown]
  - Tachycardia [Unknown]
  - Bradycardia [Unknown]
  - Haemorrhoids [Unknown]
  - Dyspepsia [Unknown]
  - Dry mouth [Unknown]
  - Rhinitis [Unknown]
  - Groin pain [Unknown]
  - Polyneuropathy [Unknown]
  - Pyrexia [Unknown]
  - Pneumonia [Unknown]
  - Petechiae [Unknown]
  - Injection site erythema [Unknown]
  - Hypotension [Unknown]
  - Chest pain [Unknown]
  - Diarrhoea [Unknown]
  - Diarrhoea [Unknown]
  - Nausea [Unknown]
  - Decreased appetite [Unknown]
  - Constipation [Unknown]
  - Dyspnoea [Unknown]
  - Fatigue [Unknown]
  - Dizziness [Unknown]
